FAERS Safety Report 16639091 (Version 2)
Quarter: 2019Q3

REPORT INFORMATION
  Report Type: Spontaneous
  Country: US (occurrence: US)
  Receive Date: 20190726
  Receipt Date: 20190830
  Transmission Date: 20191004
  Serious: No
  Sender: FDA-Public Use
  Company Number: US-BAUSCH-BL-2019-019910

PATIENT
  Sex: Female

DRUGS (1)
  1. LOTEMAX SM [Suspect]
     Active Substance: LOTEPREDNOL ETABONATE
     Indication: CATARACT OPERATION
     Dosage: UNKNOWN FREQUENCY
     Route: 047
     Dates: start: 201907

REACTIONS (4)
  - Vision blurred [Unknown]
  - Product physical consistency issue [Unknown]
  - Product prescribing error [Unknown]
  - Product deposit [Unknown]

NARRATIVE: CASE EVENT DATE: 2019
